FAERS Safety Report 5470927-0 (Version None)
Quarter: 2007Q3

REPORT INFORMATION
  Report Type: 
  Country: None (occurrence: None)
  Receive Date: 20070928
  Receipt Date: 20070919
  Transmission Date: 20080115
  Serious: Yes (Hospitalization)
  Sender: FDA-Public Use
  Company Number: US-MERCK-0708USA05325

PATIENT
  Age: 87 Year
  Sex: Female

DRUGS (6)
  1. FOSAMAX PLUS D [Suspect]
     Indication: OSTEOPOROSIS
     Route: 048
     Dates: start: 20070101
  2. ATENOLOL [Concomitant]
     Route: 065
  3. COUMADIN [Concomitant]
     Route: 065
  4. LASIX [Concomitant]
     Route: 065
  5. SYNTHROID [Concomitant]
     Route: 065
  6. DIGOXIN [Concomitant]
     Route: 065

REACTIONS (2)
  - FALL [None]
  - MUSCLE SPASMS [None]
